FAERS Safety Report 6182963-X (Version None)
Quarter: 2009Q2

REPORT INFORMATION
  Report Type: 
  Country: None (occurrence: None)
  Receive Date: 20090507
  Receipt Date: 20090504
  Transmission Date: 20091009
  Serious: Yes (Death)
  Sender: FDA-Public Use
  Company Number: DE-AVENTIS-200911181DE

PATIENT
  Age: 72 Year
  Sex: Male
  Weight: 81 kg

DRUGS (2)
  1. ARAVA [Suspect]
     Route: 048
     Dates: start: 20020601, end: 20080222
  2. HUMIRA [Suspect]
     Route: 058
     Dates: start: 20080527, end: 20090222

REACTIONS (2)
  - PLEURAL EFFUSION [None]
  - PNEUMOTHORAX [None]
